FAERS Safety Report 17512178 (Version 1)
Quarter: 2020Q1

REPORT INFORMATION
  Report Type: Report from Study
  Country: GB (occurrence: GB)
  Receive Date: 20200308
  Receipt Date: 20200308
  Transmission Date: 20200409
  Serious: Yes (Other)
  Sender: FDA-Public Use
  Company Number: NVSC2020GB063316

PATIENT

DRUGS (1)
  1. TRAMETINIB [Suspect]
     Active Substance: TRAMETINIB
     Indication: PRODUCT USED FOR UNKNOWN INDICATION
     Route: 065

REACTIONS (1)
  - Disease progression [Unknown]
